FAERS Safety Report 9278456 (Version 1)
Quarter: 2013Q2

REPORT INFORMATION
  Report Type: Spontaneous
  Country: FR (occurrence: FR)
  Receive Date: 20130508
  Receipt Date: 20130508
  Transmission Date: 20140414
  Serious: Yes (Other)
  Sender: FDA-Public Use
  Company Number: FR-PFIZER INC-2013137911

PATIENT
  Age: 45 Year
  Sex: Male

DRUGS (5)
  1. EFFEXOR LP [Suspect]
     Indication: DEPRESSION
     Dosage: 37.5 MG, 1X/DAY
     Route: 048
     Dates: start: 201303, end: 20130322
  2. METHADONE AP-HP [Concomitant]
     Dosage: 200 MG DAILY
     Route: 048
  3. METHADONE AP-HP [Concomitant]
     Dosage: 40 MG DAILY
  4. METHADONE AP-HP [Concomitant]
     Dosage: 90 MG
  5. VALIUM [Concomitant]

REACTIONS (6)
  - Delirium [Recovered/Resolved]
  - Delusion [Recovered/Resolved]
  - Hallucination, auditory [Recovered/Resolved]
  - Hallucination, visual [Recovered/Resolved]
  - Parosmia [Recovered/Resolved]
  - Feeling abnormal [Recovered/Resolved]
